FAERS Safety Report 4358610-6 (Version None)
Quarter: 2004Q2

REPORT INFORMATION
  Report Type: 
  Country: None (occurrence: None)
  Receive Date: 20040514
  Receipt Date: 20040503
  Transmission Date: 20050107
  Serious: Yes (Hospitalization)
  Sender: FDA-Public Use
  Company Number: FRWYE064918MAR03

PATIENT
  Age: 64 Year
  Sex: Male

DRUGS (5)
  1. RAPAMUNE [Suspect]
     Indication: ANGIOPLASTY
     Dosage: 15 MG 1X PER 1 DAY ORAL
     Route: 048
     Dates: start: 20030214, end: 20030224
  2. RAPAMUNE [Suspect]
     Indication: KNEE ARTHROPLASTY
     Dosage: 15 MG 1X PER 1 DAY ORAL
     Route: 048
     Dates: start: 20030214, end: 20030224
  3. RAPAMUNE [Suspect]
     Indication: PROPHYLAXIS AGAINST TRANSPLANT REJECTION
     Dosage: 15 MG 1X PER 1 DAY ORAL
     Route: 048
     Dates: start: 20030214, end: 20030224
  4. CELLCEPT [Concomitant]
  5. PREDNISOLONE [Concomitant]

REACTIONS (6)
  - ARTERIOVENOUS FISTULA, ACQUIRED [None]
  - HAEMODIALYSIS [None]
  - RENAL HAEMORRHAGE [None]
  - RENAL NECROSIS [None]
  - RENAL TUBULAR DISORDER [None]
  - ULTRASOUND KIDNEY ABNORMAL [None]
